FAERS Safety Report 21688954 (Version 1)
Quarter: 2022Q4

REPORT INFORMATION
  Report Type: Spontaneous
  Country: US (occurrence: US)
  Receive Date: 20221206
  Receipt Date: 20221206
  Transmission Date: 20230112
  Serious: No
  Sender: FDA-Public Use
  Company Number: US-TAKEDA-2022TUS092147

PATIENT
  Sex: Male

DRUGS (1)
  1. CEPROTIN [Suspect]
     Active Substance: PROTEIN C
     Indication: Coagulopathy
     Dosage: UNK, Q3WEEKS
     Route: 042

REACTIONS (2)
  - Insurance issue [Unknown]
  - Inability to afford medication [Unknown]
